FAERS Safety Report 12445022 (Version 3)
Quarter: 2016Q2

REPORT INFORMATION
  Report Type: Spontaneous
  Country: IT (occurrence: IT)
  Receive Date: 20160607
  Receipt Date: 20160629
  Transmission Date: 20160815
  Serious: Yes (Other)
  Sender: FDA-Public Use
  Company Number: IT-TEVA-664847ACC

PATIENT
  Sex: Female

DRUGS (1)
  1. COPAXONE [Suspect]
     Active Substance: GLATIRAMER ACETATE
     Indication: RELAPSING-REMITTING MULTIPLE SCLEROSIS
     Dosage: UNKNOWN STRENGTH

REACTIONS (7)
  - Tachycardia [Recovered/Resolved]
  - Shock [Recovered/Resolved]
  - Chest pain [Not Recovered/Not Resolved]
  - Lipase increased [Unknown]
  - Flushing [Recovered/Resolved]
  - Abdominal pain [Recovered/Resolved]
  - Pancreatic injury [Unknown]

NARRATIVE: CASE EVENT DATE: 20160523
